FAERS Safety Report 8679782 (Version 2)
Quarter: 2013Q1

REPORT INFORMATION
  Report Type: Spontaneous
  Country: US (occurrence: None)
  Receive Date: 20120706
  Receipt Date: 20130219
  Transmission Date: 20140127
  Serious: Yes (Other)
  Sender: FDA-Public Use
  Company Number: DSU-2012-05226

PATIENT
  Age: 77 Year
  Sex: Female

DRUGS (5)
  1. OLMESARTAN MEDOXOMIL [Suspect]
     Dosage: PER ORAL
     Route: 048
     Dates: start: 2007, end: 20111116
  2. ALLOPURINOL (ALLOPURINOL) (ALLOPURINOL) [Concomitant]
  3. ASPIRIN (ACETYLSALICYCLIC ACID) (81 MILLIGRAM) (ACETYLSALICYLIC ACID) [Concomitant]
  4. ENZALASE (BETAINE HYDROCHLORIDE, PANCREATIN, BROMELAINS, PAPAIN, CELLULASE) (BETAINE HYDROCHLORIDE, PANCREATIN, BROMELAINS, PAPAIN, CELLULASE) [Concomitant]
  5. LIPITOR (ATORVASTATIN CALCIUM) (ATORVASTATIN CALCIUM) [Concomitant]

REACTIONS (2)
  - GASTRITIS [None]
  - WEIGHT DECREASED [None]
